FAERS Safety Report 4957447-4 (Version None)
Quarter: 2006Q1

REPORT INFORMATION
  Report Type: 
  Country: None (occurrence: None)
  Receive Date: 20060327
  Receipt Date: 20060313
  Transmission Date: 20060701
  Serious: Yes (Death)
  Sender: FDA-Public Use
  Company Number: 223074

PATIENT
  Age: 16 Year
  Sex: Female

DRUGS (12)
  1. MABTHERA (RITUXIMAB) CONC FOR SOLUTION FOR INFUSION [Suspect]
     Indication: SYSTEMIC LUPUS ERYTHEMATOSUS
     Dosage: 375 MG/M2, INTRAVENOUS
     Route: 042
     Dates: start: 20051215, end: 20051222
  2. MORPHINE [Suspect]
     Dosage: 5 MG, ORAL
     Route: 048
     Dates: start: 20051226, end: 20051229
  3. PREDNISOLONE [Concomitant]
  4. LEVOTHYROXINE SODIUM [Concomitant]
  5. CARBONATE NOS [Concomitant]
  6. DEXCHLORPHENIRAMINE (DEXCHLORPHENIRAMINE MALEATE) [Concomitant]
  7. METHYLPREDNISOLONE [Concomitant]
  8. AMOXICILLIN [Concomitant]
  9. ONDANSETRON [Concomitant]
  10. CALCIFEDIOL (CALCIFEDIOL) [Concomitant]
  11. OMEPRAZOLE [Concomitant]
  12. GABAPENTIN [Concomitant]

REACTIONS (11)
  - ASTHENIA [None]
  - CARDIO-RESPIRATORY ARREST [None]
  - CARDIOVASCULAR DISORDER [None]
  - COUGH [None]
  - GENERAL PHYSICAL CONDITION ABNORMAL [None]
  - INFLAMMATION [None]
  - MUCOSAL DRYNESS [None]
  - PAIN [None]
  - RENAL IMPAIRMENT [None]
  - SHOCK [None]
  - VOMITING [None]
